APPROVED DRUG PRODUCT: CLONIDINE HYDROCHLORIDE
Active Ingredient: CLONIDINE HYDROCHLORIDE
Strength: 0.3MG
Dosage Form/Route: TABLET;ORAL
Application: A072140 | Product #001
Applicant: WARNER CHILCOTT DIV WARNER LAMBERT CO
Approved: Jun 13, 1988 | RLD: No | RS: No | Type: DISCN